FAERS Safety Report 4658875-7 (Version None)
Quarter: 2005Q2

REPORT INFORMATION
  Report Type: 
  Country: None (occurrence: None)
  Receive Date: 20050509
  Receipt Date: 20050425
  Transmission Date: 20051028
  Serious: Yes (Life-Threatening, Hospitalization)
  Sender: FDA-Public Use
  Company Number: WAES 00061046

PATIENT
  Age: 78 Year
  Sex: Female

DRUGS (3)
  1. NAPROXEN [Suspect]
     Indication: DEMENTIA ALZHEIMER'S TYPE
     Dosage: 200 MG/BID/PO
     Route: 048
  2. PLACEBO [Suspect]
     Indication: DEMENTIA ALZHEIMER'S TYPE
     Dosage: PO
     Route: 048
  3. PREDNISONE [Concomitant]

REACTIONS (3)
  - ABDOMINAL PAIN UPPER [None]
  - JEJUNAL ULCER PERFORATION [None]
  - PERITONITIS [None]
